FAERS Safety Report 4861807-X (Version None)
Quarter: 2005Q4

REPORT INFORMATION
  Report Type: 
  Country: None (occurrence: None)
  Receive Date: 20051129
  Receipt Date: 20050909
  Transmission Date: 20060501
  Serious: Yes (Other)
  Sender: FDA-Public Use
  Company Number: CHPA2005US02842

PATIENT
  Age: 37 Year
  Sex: Female
  Weight: 65.8 kg

DRUGS (3)
  1. NICOTINE [Suspect]
     Indication: SMOKING CESSATION THERAPY
     Dosage: 21 MG, QD, TRANSDERMAL
     Route: 062
     Dates: start: 20050101, end: 20050907
  2. DILANTIN [Concomitant]
  3. VITAMINS (NO INGREDIENTS/SUBSTANCES) [Concomitant]

REACTIONS (3)
  - CONCOMITANT DISEASE AGGRAVATED [None]
  - EPILEPSY [None]
  - TREATMENT NONCOMPLIANCE [None]
